FAERS Safety Report 10404911 (Version 2)
Quarter: 2014Q4

REPORT INFORMATION
  Report Type: Spontaneous
  Country: DE (occurrence: DE)
  Receive Date: 20140825
  Receipt Date: 20141006
  Transmission Date: 20150528
  Serious: Yes (Other)
  Sender: FDA-Public Use
  Company Number: DE-ROCHE-1452885

PATIENT
  Age: 45 Year
  Sex: Male

DRUGS (7)
  1. XOLAIR [Suspect]
     Active Substance: OMALIZUMAB
     Route: 065
     Dates: start: 20140802
  2. RITUXIMAB [Concomitant]
     Active Substance: RITUXIMAB
     Route: 065
     Dates: start: 2014
  3. CORTISONE [Concomitant]
     Active Substance: CORTISONE\HYDROCORTISONE
  4. XOLAIR [Suspect]
     Active Substance: OMALIZUMAB
     Dosage: 4 DF EVERY 4 WEEKS
     Route: 065
     Dates: start: 2014, end: 2014
  5. XOLAIR [Suspect]
     Active Substance: OMALIZUMAB
     Indication: PRODUCT USED FOR UNKNOWN INDICATION
     Dosage: 4 DF EVERY 4 WEEKS
     Route: 065
     Dates: start: 2011
  6. XOLAIR [Suspect]
     Active Substance: OMALIZUMAB
     Dosage: BIW (ALTERNATING 2 AND 3 DF)
     Route: 065
     Dates: start: 2014
  7. DICLOFENAC [Concomitant]
     Active Substance: DICLOFENAC

REACTIONS (4)
  - Borrelia infection [Unknown]
  - Product use issue [Unknown]
  - Infection [Unknown]
  - Drug ineffective [Unknown]

NARRATIVE: CASE EVENT DATE: 201407
